FAERS Safety Report 9820651 (Version 5)
Quarter: 2019Q1

REPORT INFORMATION
  Report Type: Spontaneous
  Country: US (occurrence: US)
  Receive Date: 20140116
  Receipt Date: 20190220
  Transmission Date: 20190418
  Serious: Yes (Hospitalization)
  Sender: FDA-Public Use
  Company Number: US-PFIZER INC-2014011733

PATIENT
  Age: 39 Year
  Sex: Female
  Weight: 89.8 kg

DRUGS (3)
  1. REVATIO [Suspect]
     Active Substance: SILDENAFIL CITRATE
     Indication: PULMONARY ARTERIAL HYPERTENSION
     Dosage: 40 MG, THREE TIMES A DAY (TAKE 2 TABS PO (THREE TIMES A DAY))
     Route: 048
     Dates: start: 2013
  2. PERCOCET [Concomitant]
     Active Substance: ACETAMINOPHEN\OXYCODONE HYDROCHLORIDE
     Indication: PAIN
     Dosage: UNK
     Route: 048
  3. AMBIEN [Concomitant]
     Active Substance: ZOLPIDEM TARTRATE
     Indication: SLEEP DISORDER
     Dosage: UNK, AS NEEDED

REACTIONS (2)
  - Uterine disorder [Unknown]
  - Product use issue [Unknown]

NARRATIVE: CASE EVENT DATE: 201305
